FAERS Safety Report 15558415 (Version 1)
Quarter: 2018Q4

REPORT INFORMATION
  Report Type: Spontaneous
  Country: US (occurrence: US)
  Receive Date: 20181023
  Receipt Date: 20181023
  Transmission Date: 20190205
  Serious: Yes (Hospitalization)
  Sender: FDA-Public Use
  Company Number: None

PATIENT
  Age: 76 Year
  Sex: Male
  Weight: 97.1 kg

DRUGS (14)
  1. PROSCAR [Concomitant]
     Active Substance: FINASTERIDE
  2. ASPIRIN. [Suspect]
     Active Substance: ASPIRIN
  3. WARFARIN [Suspect]
     Active Substance: WARFARIN
     Indication: AORTIC VALVE SCLEROSIS
     Dosage: 7.5MG DAILY PO CHRONIC
     Route: 048
  4. WARFARIN [Suspect]
     Active Substance: WARFARIN
     Indication: CORONARY ARTERY DISEASE
     Dosage: CHRONIC
     Route: 048
  5. LOPRESSOR [Concomitant]
     Active Substance: METOPROLOL TARTRATE
  6. LIPITOR [Concomitant]
     Active Substance: ATORVASTATIN CALCIUM
  7. ISORDIL [Concomitant]
     Active Substance: ISOSORBIDE DINITRATE
  8. WARFARIN [Suspect]
     Active Substance: WARFARIN
     Indication: CORONARY ARTERY BYPASS
     Dosage: 7.5MG DAILY PO CHRONIC
     Route: 048
  9. PLAVIX [Suspect]
     Active Substance: CLOPIDOGREL BISULFATE
     Route: 048
  10. VASOTEC [Concomitant]
     Active Substance: ENALAPRIL MALEATE
  11. NEURONTIN [Concomitant]
     Active Substance: GABAPENTIN
  12. VITD [Concomitant]
  13. COLACE [Concomitant]
     Active Substance: DOCUSATE SODIUM
  14. GLUCOTROL [Concomitant]
     Active Substance: GLIPIZIDE

REACTIONS (2)
  - Iron deficiency anaemia [None]
  - Upper gastrointestinal haemorrhage [None]

NARRATIVE: CASE EVENT DATE: 20180723
